FAERS Safety Report 9896208 (Version 1)
Quarter: 2014Q1

REPORT INFORMATION
  Report Type: Spontaneous
  Country: US (occurrence: US)
  Receive Date: 20140213
  Receipt Date: 20140213
  Transmission Date: 20141002
  Serious: No
  Sender: FDA-Public Use
  Company Number: US-BRISTOL-MYERS SQUIBB COMPANY-17414087

PATIENT
  Age: 50 Year
  Sex: Female
  Weight: 74.83 kg

DRUGS (10)
  1. ABATACEPT SUBQ INJECTION 125MG/ML [Suspect]
     Route: 058
  2. VITAMIN D [Concomitant]
     Dosage: CAPS,1000 UNITS
  3. METHOTREXATE [Concomitant]
     Dosage: TABS
  4. PREDNISONE [Concomitant]
     Dosage: TABS
  5. IRON [Concomitant]
     Dosage: TABS
  6. ZOLOFT [Concomitant]
     Dosage: TABS
  7. MULTIVITAMIN [Concomitant]
     Dosage: CAPS
  8. TYLENOL [Concomitant]
     Dosage: TABS
  9. IBUPROFEN [Concomitant]
     Dosage: TABS
  10. ALEVE [Concomitant]
     Dosage: CAPS

REACTIONS (1)
  - Gastroenteritis viral [Unknown]
